FAERS Safety Report 9700567 (Version 2)
Quarter: 2013Q4

REPORT INFORMATION
  Report Type: Report from Study
  Country: US (occurrence: US)
  Receive Date: 20131121
  Receipt Date: 20131121
  Transmission Date: 20140711
  Serious: Yes (Hospitalization, Other)
  Sender: FDA-Public Use
  Company Number: PHEH2013US023581

PATIENT
  Age: 45 Year
  Sex: Male

DRUGS (9)
  1. GILENYA [Suspect]
     Indication: MULTIPLE SCLEROSIS
     Dosage: 0.5 MG, QD
     Route: 048
     Dates: start: 20131107, end: 20131107
  2. ALPRAZOLAM [Concomitant]
     Indication: ANXIETY
     Dosage: 1 MG, PRN
     Route: 048
  3. AMLODIPINE [Concomitant]
     Indication: HYPERTENSION
     Dosage: 10 MG, DAILY
     Route: 048
  4. DIVALPROEX [Concomitant]
     Indication: DEPRESSION
     Dosage: 500 MG, BID
     Route: 048
  5. LISINOPRIL [Concomitant]
     Indication: HYPERTENSION
     Dosage: 10 MG, DAILY
     Route: 048
  6. FOLIC ACID [Concomitant]
  7. MECLIZINE [Concomitant]
     Indication: VERTIGO
     Dosage: 25 MG, TID
     Route: 048
  8. SEROQUEL [Concomitant]
     Indication: DEPRESSION
     Dosage: 50 MG, QHS
     Route: 048
  9. TIZANIDINE [Concomitant]
     Indication: MUSCLE SPASMS
     Dosage: 4 MG, TID
     Route: 048

REACTIONS (4)
  - Bradycardia [Unknown]
  - Supraventricular extrasystoles [Unknown]
  - Bundle branch block right [Unknown]
  - Blood pressure decreased [Unknown]
